FAERS Safety Report 6180190-3 (Version None)
Quarter: 2009Q2

REPORT INFORMATION
  Report Type: 
  Country: None (occurrence: None)
  Receive Date: 20090501
  Receipt Date: 20090422
  Transmission Date: 20091009
  Serious: No
  Sender: FDA-Public Use
  Company Number: 2009-195456-NL

PATIENT
  Age: 63 Year
  Sex: Male

DRUGS (3)
  1. MIRTAZAPINE [Suspect]
     Indication: DEPRESSION
     Dosage: 15 MG/30 MG,  ORAL
     Route: 048
     Dates: start: 20090325, end: 20090101
  2. MIRTAZAPINE [Suspect]
     Indication: DEPRESSION
     Dosage: 15 MG/30 MG,  ORAL
     Route: 048
     Dates: start: 20090101, end: 20090403
  3. RISPERIDONE [Concomitant]

REACTIONS (2)
  - HOT FLUSH [None]
  - PRURITUS GENERALISED [None]
